FAERS Safety Report 11785481 (Version 1)
Quarter: 2015Q4

REPORT INFORMATION
  Report Type: Report from Study
  Country: US (occurrence: US)
  Receive Date: 20151130
  Receipt Date: 20151130
  Transmission Date: 20160305
  Serious: Yes (Hospitalization)
  Sender: FDA-Public Use
  Company Number: US-BIOGENIDEC-2015BI157159

PATIENT
  Age: 60 Year
  Sex: Male

DRUGS (15)
  1. GLUCOSAMINE [Concomitant]
     Active Substance: GLUCOSAMINE
  2. IRON [Concomitant]
     Active Substance: IRON
  3. TEKTURNA HCT [Concomitant]
     Active Substance: ALISKIREN HEMIFUMARATE\HYDROCHLOROTHIAZIDE
  4. ASPIRIN ADULT LOW STRENGTH [Concomitant]
     Active Substance: ASPIRIN
  5. OMEGA-3 FISH OIL [Concomitant]
     Active Substance: FISH OIL\OMEGA-3 FATTY ACIDS
  6. ZOLOFT [Concomitant]
     Active Substance: SERTRALINE HYDROCHLORIDE
  7. AVONEX [Suspect]
     Active Substance: INTERFERON BETA-1A
     Indication: PRODUCT USED FOR UNKNOWN INDICATION
     Route: 030
  8. AMPYRA [Concomitant]
     Active Substance: DALFAMPRIDINE
  9. MICARDIS [Concomitant]
     Active Substance: TELMISARTAN
  10. PLAQUENIL [Concomitant]
     Active Substance: HYDROXYCHLOROQUINE SULFATE
  11. VYTORIN [Concomitant]
     Active Substance: EZETIMIBE\SIMVASTATIN
  12. BYSTOLIC [Concomitant]
     Active Substance: NEBIVOLOL HYDROCHLORIDE
  13. CONCERTA [Concomitant]
     Active Substance: METHYLPHENIDATE HYDROCHLORIDE
  14. CHONDROITIN ADV [Concomitant]
  15. LYRICA [Concomitant]
     Active Substance: PREGABALIN

REACTIONS (1)
  - Pharyngeal operation [Unknown]

NARRATIVE: CASE EVENT DATE: 20151125
